FAERS Safety Report 8443999-9 (Version None)
Quarter: 2012Q2

REPORT INFORMATION
  Report Type: 
  Country: None (occurrence: None)
  Receive Date: 20120618
  Receipt Date: 20120611
  Transmission Date: 20120825
  Serious: Yes (Hospitalization)
  Sender: FDA-Public Use
  Company Number: PHHY2012BE050434

PATIENT
  Sex: Male

DRUGS (5)
  1. INSULIN [Concomitant]
  2. SANDOSTATIN LAR [Suspect]
     Route: 030
  3. LANTUS [Concomitant]
  4. ZOCOR [Concomitant]
  5. CARDIOASPIRINE [Concomitant]

REACTIONS (1)
  - CARDIOMYOPATHY [None]
